FAERS Safety Report 23345352 (Version 1)
Quarter: 2023Q4

REPORT INFORMATION
  Report Type: Spontaneous
  Country: FR (occurrence: FR)
  Receive Date: 20231228
  Receipt Date: 20231228
  Transmission Date: 20240110
  Serious: Yes (Other)
  Sender: FDA-Public Use
  Company Number: FR-ORPHANEU-2023009178

PATIENT

DRUGS (2)
  1. OSILODROSTAT [Suspect]
     Active Substance: OSILODROSTAT
     Indication: Cushing^s syndrome
     Dosage: 10 MG, DAILY
  2. OSILODROSTAT [Suspect]
     Active Substance: OSILODROSTAT
     Dosage: 1 MG, DAILY (FROM WEEK 10 TO WEEK 64)

REACTIONS (3)
  - Adrenal insufficiency [Unknown]
  - Adrenal insufficiency [Not Recovered/Not Resolved]
  - Therapeutic product effect prolonged [Recovered/Resolved]
